FAERS Safety Report 5410957-8 (Version None)
Quarter: 2007Q3

REPORT INFORMATION
  Report Type: 
  Country: None (occurrence: None)
  Receive Date: 20070810
  Receipt Date: 20070731
  Transmission Date: 20080115
  Serious: Yes (Life-Threatening)
  Sender: FDA-Public Use
  Company Number: US-KINGPHARMUSA00001-K200700960

PATIENT

DRUGS (4)
  1. TIGAN [Suspect]
     Indication: NAUSEA
     Dosage: 100 MG, SINGLE
     Route: 042
     Dates: start: 20070423, end: 20070423
  2. SODIUM CHLORIDE [Concomitant]
     Indication: FLUID REPLACEMENT
     Route: 042
  3. TYLENOL   /00020001/ [Concomitant]
     Dosage: UNK, PRN
     Route: 054
  4. DEXTROSE 5% IN WATER [Concomitant]
     Route: 042

REACTIONS (7)
  - INCORRECT ROUTE OF DRUG ADMINISTRATION [None]
  - LETHARGY [None]
  - OBSTRUCTIVE AIRWAYS DISORDER [None]
  - OXYGEN SATURATION DECREASED [None]
  - RESPIRATORY DISTRESS [None]
  - RESPIRATORY FAILURE [None]
  - UNRESPONSIVE TO STIMULI [None]
